FAERS Safety Report 19959115 (Version 2)
Quarter: 2021Q4

REPORT INFORMATION
  Report Type: Spontaneous
  Country: CN (occurrence: CN)
  Receive Date: 20211015
  Receipt Date: 20211121
  Transmission Date: 20220303
  Serious: Yes (Hospitalization, Other)
  Sender: FDA-Public Use
  Company Number: CN-009507513-2110CHN002306

PATIENT
  Age: 22 Year
  Sex: Female
  Weight: 55 kg

DRUGS (7)
  1. NOXAFIL [Suspect]
     Active Substance: POSACONAZOLE
     Indication: Fungal infection
     Dosage: 5ML, TID
     Route: 048
     Dates: start: 20210921, end: 20211003
  2. DAUNORUBICIN HYDROCHLORIDE [Suspect]
     Active Substance: DAUNORUBICIN HYDROCHLORIDE
     Indication: Chemotherapy
     Dosage: 146MG, QD
     Route: 041
     Dates: start: 20210919, end: 20210921
  3. MEROPENEM [Suspect]
     Active Substance: MEROPENEM
     Indication: Anti-infective therapy
     Dosage: 1G, Q8H
     Route: 041
     Dates: start: 20210917, end: 20211004
  4. CYTARABINE [Suspect]
     Active Substance: CYTARABINE
     Indication: Chemotherapy
     Dosage: 162 MG, QD
     Route: 041
     Dates: start: 20210919, end: 20210925
  5. SODIUM CHLORID [Concomitant]
     Indication: Medication dilution
     Dosage: 100ML, Q8H
     Route: 041
     Dates: start: 20210917, end: 20211004
  6. SODIUM CHLORID [Concomitant]
     Dosage: 100ML, Q8H
     Route: 041
     Dates: start: 20210919, end: 20210921
  7. SODIUM CHLORID [Concomitant]
     Dosage: 100ML, Q8H
     Route: 041
     Dates: start: 20210919, end: 20210925

REACTIONS (2)
  - Erythema multiforme [Recovering/Resolving]
  - Drug eruption [Recovering/Resolving]

NARRATIVE: CASE EVENT DATE: 20210928
